FAERS Safety Report 10267369 (Version 1)
Quarter: 2014Q2

REPORT INFORMATION
  Report Type: Spontaneous
  Country: US (occurrence: None)
  Receive Date: 20140625
  Receipt Date: 20140625
  Transmission Date: 20141212
  Serious: Yes (Hospitalization)
  Sender: FDA-Public Use
  Company Number: UCM201406-000106

PATIENT
  Age: 11 Year
  Sex: Female

DRUGS (1)
  1. CETIRIZINE HCL 5 MG TABLETS (CETIRIZINE, HCL) (CETIRIZINE, HCL) [Suspect]

REACTIONS (1)
  - Acute generalised exanthematous pustulosis [None]
